FAERS Safety Report 8544092-7 (Version None)
Quarter: 2012Q3

REPORT INFORMATION
  Report Type: 
  Country: None (occurrence: None)
  Receive Date: 20120727
  Receipt Date: 20120720
  Transmission Date: 20120928
  Serious: Yes (Death, Hospitalization, Other)
  Sender: FDA-Public Use
  Company Number: US-MSD-2012SP031736

PATIENT

DRUGS (3)
  1. REBETOL [Suspect]
     Indication: HEPATITIS C
     Dosage: UNK
     Dates: start: 20120504, end: 20120629
  2. PEG-INTRON [Suspect]
     Indication: HEPATITIS C
     Dosage: UNK
     Dates: start: 20120504, end: 20120629
  3. VICTRELIS [Suspect]
     Indication: HEPATITIS C
     Dosage: UNK
     Dates: start: 20120608, end: 20120629

REACTIONS (21)
  - HAEMOGLOBIN DECREASED [None]
  - FEELING OF BODY TEMPERATURE CHANGE [None]
  - HYPOGEUSIA [None]
  - APHONIA [None]
  - DYSGEUSIA [None]
  - DEATH [None]
  - ANAEMIA [None]
  - WHITE BLOOD CELL COUNT DECREASED [None]
  - DEHYDRATION [None]
  - OROPHARYNGEAL PAIN [None]
  - WEIGHT DECREASED [None]
  - INFLUENZA LIKE ILLNESS [None]
  - FULL BLOOD COUNT DECREASED [None]
  - VOMITING [None]
  - DIARRHOEA [None]
  - DYSPHAGIA [None]
  - CHEILITIS [None]
  - ASTHENIA [None]
  - STOMATITIS [None]
  - CHILLS [None]
  - PHARYNGITIS [None]
